FAERS Safety Report 9161304 (Version 2)
Quarter: 2013Q2

REPORT INFORMATION
  Report Type: Spontaneous
  Country: JP (occurrence: JP)
  Receive Date: 20130313
  Receipt Date: 20130506
  Transmission Date: 20140414
  Serious: Yes (Death, Life-Threatening, Hospitalization)
  Sender: FDA-Public Use
  Company Number: JP-CELGENEUS-087-21880-13020732

PATIENT
  Age: 73 Year
  Sex: Female
  Weight: 52 kg

DRUGS (12)
  1. REVLIMID [Suspect]
     Indication: PLASMA CELL MYELOMA
     Dosage: 25 MILLIGRAM
     Route: 048
     Dates: start: 20121206, end: 20121219
  2. REVLIMID [Suspect]
     Dosage: 25 MILLIGRAM
     Route: 048
     Dates: start: 20130103, end: 20130114
  3. DECADRON [Concomitant]
     Indication: PLASMA CELL MYELOMA
     Dosage: 20 MILLIGRAM
     Route: 048
     Dates: start: 20121206
  4. DECADRON [Concomitant]
     Dosage: 20 MILLIGRAM
     Route: 048
     Dates: start: 20130103, end: 20130115
  5. HEMOCURON [Concomitant]
     Indication: HAEMORRHOIDS
     Dosage: 3 TABLET
     Route: 048
     Dates: start: 20120918
  6. TAKEPRON [Concomitant]
     Indication: PROPHYLAXIS
     Dosage: 1 TABLET
     Route: 048
     Dates: start: 20120814
  7. LYRICA [Concomitant]
     Indication: HYPOAESTHESIA
     Dosage: 6 CAPSULE
     Route: 048
     Dates: start: 20120814
  8. BENZALIN [Concomitant]
     Indication: INSOMNIA
     Dosage: 1 TABLET
     Route: 048
     Dates: start: 20120814
  9. ALFASULY [Concomitant]
     Indication: OSTEOPOROSIS
     Dosage: 1 CAPSULE
     Route: 048
     Dates: start: 20120814
  10. GLACTIV [Concomitant]
     Indication: DIABETES MELLITUS
     Dosage: 1 TABLET
     Route: 048
     Dates: start: 20120814
  11. MAGMITT [Concomitant]
     Indication: CONSTIPATION
     Dosage: 6 TABLET
     Route: 048
     Dates: start: 20120814
  12. YODEL-S [Concomitant]
     Indication: CONSTIPATION
     Dosage: 1 TABLET
     Route: 048
     Dates: start: 20120814

REACTIONS (3)
  - Shock haemorrhagic [Fatal]
  - Septic shock [Fatal]
  - Interstitial lung disease [Recovered/Resolved]
